FAERS Safety Report 6719204-8 (Version None)
Quarter: 2010Q2

REPORT INFORMATION
  Report Type: 
  Country: None (occurrence: None)
  Receive Date: 20100507
  Receipt Date: 20100423
  Transmission Date: 20101027
  Serious: Yes (Hospitalization)
  Sender: FDA-Public Use
  Company Number: JV200800583

PATIENT
  Age: 53 Year
  Sex: Male
  Weight: 77.1 kg

DRUGS (7)
  1. MORPHINE SULFATE [Suspect]
     Indication: PAIN
     Dosage: 30 MG, BID, ORAL
     Route: 048
     Dates: start: 20050101
  2. ULTRAM (TRAMADOL HYDROCHLORIDE0 [Concomitant]
  3. XANAX [Concomitant]
  4. ALPRAZOLAM [Concomitant]
  5. CARISOPRODOL [Concomitant]
  6. FLUOXETINE [Concomitant]
  7. ATIVAN [Concomitant]

REACTIONS (29)
  - AGGRESSION [None]
  - AMNESIA [None]
  - ANXIETY [None]
  - BLOOD POTASSIUM DECREASED [None]
  - CARDIAC DISORDER [None]
  - CHEST DISCOMFORT [None]
  - DEPERSONALISATION [None]
  - DIPLOPIA [None]
  - DIZZINESS [None]
  - DRUG DISPENSING ERROR [None]
  - DYSPNOEA [None]
  - ELECTROCARDIOGRAM T WAVE INVERSION [None]
  - FAMILY STRESS [None]
  - FLASHBACK [None]
  - HAEMATOCRIT DECREASED [None]
  - HEADACHE [None]
  - HYPERTENSION [None]
  - INSOMNIA [None]
  - MEAN CELL VOLUME DECREASED [None]
  - MOOD SWINGS [None]
  - NAUSEA [None]
  - PANIC ATTACK [None]
  - PRODUCT COLOUR ISSUE [None]
  - PRODUCT SIZE ISSUE [None]
  - SEDATION [None]
  - SUICIDAL IDEATION [None]
  - TACHYCARDIA [None]
  - TREMOR [None]
  - VISUAL IMPAIRMENT [None]
